FAERS Safety Report 4284693-8 (Version None)
Quarter: 2004Q1

REPORT INFORMATION
  Report Type: 
  Country: None (occurrence: None)
  Receive Date: 20040130
  Receipt Date: 20040108
  Transmission Date: 20041129
  Serious: Yes (Hospitalization)
  Sender: FDA-Public Use
  Company Number: B0266310A

PATIENT
  Age: 28 Year
  Sex: Male

DRUGS (4)
  1. MALARONE [Suspect]
     Indication: MALARIA
     Dosage: ORAL
     Route: 048
  2. CHLOROQUINE [Concomitant]
  3. PROGUANIL [Concomitant]
  4. MEFLOQUINE HCL [Concomitant]

REACTIONS (3)
  - DRUG RESISTANCE [None]
  - MOUTH ULCERATION [None]
  - PLASMODIUM FALCIPARUM INFECTION [None]
